FAERS Safety Report 24770867 (Version 1)
Quarter: 2024Q4

REPORT INFORMATION
  Report Type: Spontaneous
  Country: RU (occurrence: RU)
  Receive Date: 20241224
  Receipt Date: 20241224
  Transmission Date: 20250115
  Serious: Yes (Other)
  Sender: BAYER HEALTHCARE PHARMACEUTICALS INC.
  Company Number: RU-BAYER-2024A178215

PATIENT
  Age: 27 Year
  Sex: Female

DRUGS (6)
  1. KYLEENA [Suspect]
     Active Substance: LEVONORGESTREL
     Dosage: 17.5?G/DAY
     Route: 015
     Dates: start: 20240330
  2. CYANOCOBALAMIN\PYRIDOXINE\THIAMINE [Concomitant]
     Active Substance: CYANOCOBALAMIN\PYRIDOXINE\THIAMINE
  3. DICLOFENAC [Concomitant]
     Active Substance: DICLOFENAC
  4. HOMEOPATHICS [Concomitant]
     Active Substance: HOMEOPATHICS
  5. IBUPROFEN [Concomitant]
     Active Substance: IBUPROFEN
  6. Vigantol [Concomitant]

REACTIONS (13)
  - Pyelonephritis [None]
  - Rash [Recovered/Resolved]
  - Nail dystrophy [None]
  - Rash erythematous [Not Recovered/Not Resolved]
  - Pruritus [None]
  - Arthralgia [None]
  - Pain in extremity [Not Recovered/Not Resolved]
  - Arthritis [None]
  - Chronic tonsillitis [None]
  - Sinusitis [None]
  - Haemorrhoids [None]
  - Varicose veins pelvic [None]
  - Varicose vein [None]

NARRATIVE: CASE EVENT DATE: 20240905
